FAERS Safety Report 9136321 (Version 1)
Quarter: 2013Q1

REPORT INFORMATION
  Report Type: Spontaneous
  Country: US (occurrence: US)
  Receive Date: 20130219
  Receipt Date: 20130219
  Transmission Date: 20140127
  Serious: Yes (Hospitalization, Other)
  Sender: FDA-Public Use
  Company Number: US-BRISTOL-MYERS SQUIBB COMPANY-16516643

PATIENT
  Age: 62 Year
  Sex: Female

DRUGS (45)
  1. ORENCIA [Suspect]
     Indication: RHEUMATOID ARTHRITIS
     Dosage: LAST INF 5AUG09?LOADING DOSES WK 0,2+4.
     Route: 042
     Dates: start: 20090507, end: 200908
  2. RITUXAN [Suspect]
     Dosage: DOSAGE STRENGTH: 10MG/ML,LAST INF:AUG11
     Route: 042
     Dates: start: 200912
  3. MACROBID [Concomitant]
  4. DURAGESIC PATCH [Concomitant]
  5. FLONASE [Concomitant]
  6. VENTOLIN INHALER [Concomitant]
  7. FOLIC ACID [Concomitant]
  8. VITAMIN B [Concomitant]
  9. CALCIUM + VITAMIN D [Concomitant]
  10. MULTIVITAMIN [Concomitant]
  11. ACETYLSALICYLIC ACID [Concomitant]
  12. PREDNISONE [Concomitant]
  13. FELDENE [Concomitant]
  14. CRESTOR [Concomitant]
  15. DIAMOX [Concomitant]
  16. COREG [Concomitant]
  17. GLUCOPHAGE [Concomitant]
  18. NEXIUM [Concomitant]
  19. SPIRONOLACTONE [Concomitant]
  20. LASIX [Concomitant]
  21. ZOLOFT [Concomitant]
  22. LISINOPRIL [Concomitant]
  23. GLUCOTROL [Concomitant]
  24. LOPID [Concomitant]
  25. ADVAIR [Concomitant]
  26. AMBIEN [Concomitant]
  27. PROMETHAZINE [Concomitant]
  28. ARANESP [Concomitant]
  29. LORCET [Concomitant]
  30. ATIVAN [Concomitant]
     Dosage: TABS
     Route: 048
  31. ARAVA [Concomitant]
     Dosage: TABS
     Route: 048
  32. COMBIVENT [Concomitant]
     Dosage: 1 DF: 1-2 UNITS NOS
  33. NOVOLOG [Concomitant]
     Dosage: SOLUTION
  34. LEVEMIR [Concomitant]
     Dosage: 1 DF: 100UNITS/ML SOLN
     Route: 058
  35. NYSTATIN POWDER [Concomitant]
  36. PRISTIQ [Concomitant]
     Dosage: PRISTIQ 100MG XR TABS
  37. PLAVIX [Concomitant]
     Dosage: TABS
  38. DIGOXIN [Concomitant]
     Dosage: TABS
  39. BYSTOLIC [Concomitant]
     Dosage: TABS
  40. ENALAPRIL MALEATE [Concomitant]
     Dosage: 1 DF: 1 TAB
  41. OXYCODONE HCL + ACETAMINOPHEN [Concomitant]
     Dosage: EVERY 4-6 HRS, 1DF: 10-325 MG TABS
     Route: 048
  42. BUSPIRONE HCL [Concomitant]
     Dosage: TABS
     Route: 048
  43. CHLOROTHIAZIDE [Concomitant]
     Route: 048
  44. LUTEIN [Concomitant]
     Dosage: TABS
  45. IPRATROPIUM + ALBUTEROL [Concomitant]
     Dosage: NEBULIZER PRN

REACTIONS (3)
  - Pneumonia [Unknown]
  - Chronic obstructive pulmonary disease [Unknown]
  - Sinusitis [Unknown]
